FAERS Safety Report 21391857 (Version 1)
Quarter: 2022Q3

REPORT INFORMATION
  Report Type: Spontaneous
  Country: DE (occurrence: DE)
  Receive Date: 20220929
  Receipt Date: 20220929
  Transmission Date: 20221027
  Serious: Yes (Other)
  Sender: FDA-Public Use
  Company Number: None

PATIENT
  Sex: Male

DRUGS (9)
  1. RANEXA [Interacting]
     Active Substance: RANOLAZINE
     Indication: Coronary artery disease
     Dosage: UNK UNK, QD
     Route: 065
  2. MOLSIDOMINE [Interacting]
     Active Substance: MOLSIDOMINE
     Indication: Coronary artery disease
     Dosage: UNK UNK, QD
     Route: 065
  3. CANDESARTAN [Interacting]
     Active Substance: CANDESARTAN
     Indication: Coronary artery disease
     Dosage: UNK UNK, QD
     Route: 065
  4. CELECOXIB [Interacting]
     Active Substance: CELECOXIB
     Indication: Ankylosing spondylitis
     Dosage: 200 MG, PRN 2 TO 3 CAPSULES FOR 2 DAYS PER MONTH
     Route: 065
  5. CELECOXIB [Interacting]
     Active Substance: CELECOXIB
     Dosage: QD ONE CAPSULE FOR APPROX. 5 DAYS.
     Route: 065
  6. DILTIAZEM HYDROCHLORIDE [Interacting]
     Active Substance: DILTIAZEM HYDROCHLORIDE
     Indication: Coronary artery disease
     Dosage: 90 MG, QD
     Route: 065
  7. ROSUVASTATIN [Concomitant]
     Active Substance: ROSUVASTATIN
     Indication: Coronary artery disease
     Dosage: UNK UNK, QD
     Route: 065
  8. XARELTO [Concomitant]
     Active Substance: RIVAROXABAN
     Indication: Coronary artery disease
     Dosage: 2.5 MG, QD
     Route: 065
  9. ASPIRIN [Concomitant]
     Active Substance: ASPIRIN
     Indication: Coronary artery disease
     Dosage: UNK UNK, QD
     Route: 065

REACTIONS (4)
  - Angina pectoris [Recovered/Resolved]
  - Chest pain [Recovered/Resolved]
  - Drug interaction [Unknown]
  - Off label use [Unknown]
